FAERS Safety Report 9408240 (Version 2)
Quarter: 2013Q3

REPORT INFORMATION
  Report Type: Spontaneous
  Country: US (occurrence: US)
  Receive Date: 20130718
  Receipt Date: 20130807
  Transmission Date: 20140515
  Serious: Yes (Hospitalization)
  Sender: FDA-Public Use
  Company Number: US-PFIZER INC-2013209274

PATIENT
  Age: 47 Year
  Sex: Male

DRUGS (2)
  1. NEURONTIN [Suspect]
     Dosage: 1200 MG, 3X/DAY (600MG 2 TID)
  2. EFFEXOR XR [Suspect]
     Dosage: 75 MG, 2X/DAY

REACTIONS (1)
  - Multiple sclerosis [Unknown]
